FAERS Safety Report 6120155-0 (Version None)
Quarter: 2009Q1

REPORT INFORMATION
  Report Type: 
  Country: None (occurrence: None)
  Receive Date: 20090316
  Receipt Date: 20090114
  Transmission Date: 20090719
  Serious: No
  Sender: FDA-Public Use
  Company Number: US-ABBOTT-09P-163-0497998-00

PATIENT
  Sex: Male

DRUGS (9)
  1. TRILIPIX [Suspect]
     Indication: HYPERLIPIDAEMIA
     Dates: start: 20090112, end: 20090114
  2. METFORMIN HCL [Concomitant]
     Indication: DRUG USE FOR UNKNOWN INDICATION
  3. ACTOS [Concomitant]
     Indication: DRUG USE FOR UNKNOWN INDICATION
  4. GLIPIZIDE [Concomitant]
     Indication: DRUG USE FOR UNKNOWN INDICATION
  5. FLUOXATINE HCL [Concomitant]
     Indication: DRUG USE FOR UNKNOWN INDICATION
  6. QUINAPRIL [Concomitant]
     Indication: DRUG USE FOR UNKNOWN INDICATION
  7. METOPROLOL SUCCINATE EXTENDED RELEASE [Concomitant]
     Indication: DRUG USE FOR UNKNOWN INDICATION
  8. TOMAZAPAN [Concomitant]
     Indication: DRUG USE FOR UNKNOWN INDICATION
  9. HYDROCODONE [Concomitant]
     Indication: DRUG USE FOR UNKNOWN INDICATION
     Dosage: 7.5/500 PRN

REACTIONS (1)
  - RASH [None]
